FAERS Safety Report 7723826-5 (Version None)
Quarter: 2011Q3

REPORT INFORMATION
  Report Type: 
  Country: None (occurrence: None)
  Receive Date: 20110901
  Receipt Date: 20110824
  Transmission Date: 20111222
  Serious: Yes (Death, Hospitalization)
  Sender: FDA-Public Use
  Company Number: CA-JNJFOC-20110512546

PATIENT
  Sex: Male
  Weight: 64 kg

DRUGS (2)
  1. PURINETHOL [Suspect]
     Indication: CROHN'S DISEASE
  2. REMICADE [Suspect]
     Indication: CROHN'S DISEASE
     Dosage: 6 TOTAL INFUSIONS
     Route: 042
     Dates: start: 20051220, end: 20060825

REACTIONS (1)
  - HEPATOSPLENIC T-CELL LYMPHOMA [None]
